FAERS Safety Report 6785072-1 (Version None)
Quarter: 2010Q2

REPORT INFORMATION
  Report Type: 
  Country: None (occurrence: None)
  Receive Date: 20100618
  Receipt Date: 20100604
  Transmission Date: 20101027
  Serious: Yes (Other)
  Sender: FDA-Public Use
  Company Number: 1000012709

PATIENT
  Age: 78 Year
  Sex: Female

DRUGS (2)
  1. ESCITALOPRAM (ESCITALOPRAM OXALATE) (TABLETS) [Suspect]
     Dosage: 10 MG (10 MG, 1 IN 1 D), ORAL
     Route: 048
     Dates: start: 20100105, end: 20100121
  2. ESCITALOPRAM [Suspect]
     Dosage: 15 MG (15 MG, 1 IN 1 D), ORAL
     Route: 048
     Dates: start: 20100122, end: 20100305

REACTIONS (8)
  - AGGRESSION [None]
  - CRYING [None]
  - DELIRIUM [None]
  - DEMENTIA [None]
  - DRUG EFFECT DECREASED [None]
  - DYSARTHRIA [None]
  - PARKINSONISM [None]
  - TREMOR [None]
